FAERS Safety Report 6636006-1 (Version None)
Quarter: 2010Q1

REPORT INFORMATION
  Report Type: 
  Country: None (occurrence: None)
  Receive Date: 20100311
  Receipt Date: 20100308
  Transmission Date: 20100710
  Serious: Yes (Life-Threatening, Hospitalization, Other)
  Sender: FDA-Public Use
  Company Number: 2008SP010558

PATIENT
  Age: 58 Year
  Sex: Female

DRUGS (14)
  1. TEMODAR [Suspect]
     Indication: HEPATIC NEOPLASM MALIGNANT
     Dosage: 200 MG/M2; QD; PO; 150 MG/M2; QD; PO
     Route: 048
     Dates: start: 20080402, end: 20080406
  2. TEMODAR [Suspect]
     Indication: HEPATIC NEOPLASM MALIGNANT
     Dosage: 200 MG/M2; QD; PO; 150 MG/M2; QD; PO
     Route: 048
     Dates: start: 20080513, end: 20080515
  3. ABT-888 (INVESTIGATIONAL DRUG) 	  HEPATOCELLULAR CANCER [Suspect]
     Dosage: 80 MG; BID; PO; 40 MG; PO
     Route: 048
     Dates: start: 20080402, end: 20080408
  4. ABT-888 (INVESTIGATIONAL DRUG) 	  HEPATOCELLULAR CANCER [Suspect]
     Dosage: 80 MG; BID; PO; 40 MG; PO
     Route: 048
     Dates: start: 20080513, end: 20080515
  5. SORAFENIB [Concomitant]
  6. TYLENOL PM [Concomitant]
  7. IMODIUM [Concomitant]
  8. HYDROCODONE [Concomitant]
  9. METOCLOPRAMIDE [Concomitant]
  10. ONDANSETRON [Concomitant]
  11. DIPHENHYDRAMNE  HYDROCHLORIDE [Concomitant]
  12. OMEPRAZOLE [Concomitant]
  13. LANSOPRAZOLE [Concomitant]
  14. ACETYLSALICYLIC ACID [Concomitant]

REACTIONS (20)
  - ABDOMINAL TENDERNESS [None]
  - ASPARTATE AMINOTRANSFERASE INCREASED [None]
  - ASTHENIA [None]
  - BLOOD ALBUMIN DECREASED [None]
  - BLOOD ALKALINE PHOSPHATASE INCREASED [None]
  - BREATH SOUNDS ABNORMAL [None]
  - FATIGUE [None]
  - FEELING ABNORMAL [None]
  - HAEMOGLOBIN ABNORMAL [None]
  - HYPERCOAGULATION [None]
  - HYPOVOLAEMIA [None]
  - LIVER DISORDER [None]
  - NEUTROPENIA [None]
  - PROTEIN TOTAL DECREASED [None]
  - PULMONARY EMBOLISM [None]
  - PYREXIA [None]
  - TACHYCARDIA [None]
  - THROMBOCYTOPENIA [None]
  - TUMOUR PERFORATION [None]
  - WHITE BLOOD CELL COUNT DECREASED [None]
